FAERS Safety Report 9257571 (Version 1)
Quarter: 2013Q1

REPORT INFORMATION
  Report Type: Spontaneous
  Country: US (occurrence: None)
  Receive Date: 20121212
  Receipt Date: 20121212
  Transmission Date: 20140127
  Serious: No
  Sender: FDA-Public Use
  Company Number: 1210USA005540

PATIENT
  Age: 54 Year
  Sex: Male

DRUGS (6)
  1. VICTRELIS (BOCEPREVIR) CAPSULE, 200MG [Suspect]
     Indication: HEPATITIS C
     Route: 048
     Dates: start: 20120926
  2. PEGASYS (PEGINTERFERON ALFA-2A) [Suspect]
  3. RIBAPAK (RIBAVIRIN) [Suspect]
  4. ATENOLOL (ATENOLOL) [Concomitant]
  5. CITALOPRAM (CITALOPRAM) [Concomitant]
  6. ALKA0-SELTZER (ASPIRIN, CITRIC ACID, SODIUM BICARBONATE) [Concomitant]

REACTIONS (1)
  - Epistaxis [None]
